FAERS Safety Report 5593533-6 (Version None)
Quarter: 2008Q1

REPORT INFORMATION
  Report Type: 
  Country: None (occurrence: None)
  Receive Date: 20080116
  Receipt Date: 20080110
  Transmission Date: 20080703
  Serious: Yes (Hospitalization)
  Sender: FDA-Public Use
  Company Number: GB-ROCHE-536948

PATIENT
  Age: 57 Year
  Sex: Female
  Weight: 104.8 kg

DRUGS (24)
  1. ORLISTAT [Suspect]
     Indication: OBESITY
     Route: 048
     Dates: start: 20070910
  2. LACTULOSE [Concomitant]
     Dosage: STRENGTH 3.35G/5ML. LAST RECEIVED ON 1 NOV 2006
     Route: 065
     Dates: start: 20061009
  3. INSULIN [Concomitant]
     Dosage: 100 SINGLE USE INSULIN FORM SYRINGE WITH 12 MM NEEDLE (27G) USE AS DIRECTED
     Dates: start: 20061009
  4. CLOTRIMAZOLE [Concomitant]
     Indication: THERAPEUTIC PROCEDURE
     Dosage: STRENGTH 500 MG + 2%. USE AS DIRECTED LAST ON 9 NOV 2007
     Dates: start: 20061009
  5. BUDESONIDE [Concomitant]
     Dosage: FORM AQUEOUS NASAL SPRAY LAST ON 2 OCT 2007
     Dates: start: 20061009
  6. HUMALOG [Concomitant]
     Dosage: 10 UNITS IN MORNING 8 UNITS MIDDAY 12 UNITS NIGHT LAST ON 17 DEC 2007
     Dates: start: 20070402
  7. METFORMIN HCL [Concomitant]
     Dosage: 2 DOSE FORM WITH BREAKFAST AND TWO WITH TEA LAST ON 5 DEC 2007
     Dates: start: 20070402
  8. LEVEMIR [Concomitant]
     Dosage: USE AS DIRECTED. LAST ON 17 DEC 2007 DRUG LEVEMIR PENFILL
     Dates: start: 20070717
  9. BENDROFLUMETHIAZIDE [Concomitant]
     Dosage: EACH MORNING LAST ON 17 DEC 2007
     Dates: start: 20070829
  10. ASPIRIN [Concomitant]
     Dates: start: 20070829
  11. DOXAZOSIN [Concomitant]
     Dosage: LAST ON 17 DEC 2007
     Dates: start: 20070829
  12. ATORVASTATIN [Concomitant]
     Dosage: RECEIVED AT NIGHT LAST ON 5 DEC 2007
     Dates: start: 20070829
  13. GAVISCON [Concomitant]
     Dosage: STRENGTH 1000 MG+ 200  LAST ON 17 DEC 2007
     Route: 048
     Dates: start: 20070829
  14. LORAZEPAM [Concomitant]
     Dosage: LAST ON 17 DEC 2007
     Dates: start: 20071017
  15. FERSAMAL [Concomitant]
     Dosage: REDUCE TO ONE IF GET CONSTIPATED. LAST ON 5 NOV 2007
     Dates: start: 20071105
  16. AUGMENTIN '250' [Concomitant]
     Dosage: LAST ON 9 NOV 2007
     Dates: start: 20071109
  17. CANDESARTAN [Concomitant]
     Dosage: LAST ON 17 DEC 2007
     Dates: start: 20071113
  18. METRONIDAZOLE [Concomitant]
     Dosage: LAST ON 28 DEC 2007
     Dates: start: 20071228
  19. CLOMIPRAMINE HCL [Concomitant]
     Dosage: RECEIVED AT NIGHT; ONE IN MORNING AND ONE AT MIDDAY IF NEEDED
     Dates: start: 20080104
  20. 1 CONCOMITANT DRUG [Concomitant]
     Dosage: SHRPSBIN CONTAINER. USE AS DIRECTED
     Dates: start: 20061009
  21. 1 CONCOMITANT DRUG [Concomitant]
     Dosage: NOVOFINE SCREW PEN NEEDLE STRENGTH 8MM/30 GAUGE. USE AS DIRECTED
     Dates: start: 20061009
  22. 1 CONCOMITANT DRUG [Concomitant]
     Dosage: COLLECT FROM ALLIANCE CROWN APPLY AS NEEDED
     Dates: start: 20070302
  23. 1 CONCOMITANT DRUG [Concomitant]
     Dosage: NOVOPEN 3 FUN- BLUE INSULIN PEN 3ML/2-70 UNITS USE AS DIRECTED
     Dates: start: 20070514
  24. 1 CONCOMITANT DRUG [Concomitant]
     Dosage: MEDISENSE OPTIUM PLUS BIOSENSOR STRIP. USE AS DIRECTED LAST 21 DEC 2007
     Dates: start: 20070829

REACTIONS (1)
  - EPISTAXIS [None]
